FAERS Safety Report 11079193 (Version 1)
Quarter: 2015Q2

REPORT INFORMATION
  Report Type: Spontaneous
  Country: PH (occurrence: PH)
  Receive Date: 20150430
  Receipt Date: 20150430
  Transmission Date: 20150821
  Serious: Yes (Death, Hospitalization, Other)
  Sender: FDA-Public Use
  Company Number: PH-009507513-1504PHL023129

PATIENT
  Age: 40 Year
  Sex: Male

DRUGS (1)
  1. COZAAR [Suspect]
     Active Substance: LOSARTAN POTASSIUM
     Indication: DIABETES MELLITUS
     Dosage: ONE TABLET, ONCE A DAY
     Route: 048
     Dates: start: 2014

REACTIONS (3)
  - Blood pressure increased [Unknown]
  - Myocardial infarction [Fatal]
  - Drug administration error [Unknown]

NARRATIVE: CASE EVENT DATE: 2012
